FAERS Safety Report 23676376 (Version 1)
Quarter: 2024Q1

REPORT INFORMATION
  Report Type: Spontaneous
  Country: DE (occurrence: DE)
  Receive Date: 20240327
  Receipt Date: 20240327
  Transmission Date: 20240410
  Serious: Yes (Other)
  Sender: FDA-Public Use
  Company Number: None

PATIENT
  Age: 1 Day
  Sex: Female
  Weight: 2.6 kg

DRUGS (2)
  1. QUETIAPINE FUMARATE [Suspect]
     Active Substance: QUETIAPINE FUMARATE
     Indication: Depression
     Dosage: 100 MG/D
     Dates: start: 20221228, end: 20230927
  2. CITALOPRAM [Suspect]
     Active Substance: CITALOPRAM\CITALOPRAM HYDROBROMIDE
     Indication: Depression
     Dosage: 20 MG/D
     Dates: start: 20221228, end: 20230927

REACTIONS (2)
  - Foetal exposure during pregnancy [Unknown]
  - Small for dates baby [Recovered/Resolved]

NARRATIVE: CASE EVENT DATE: 20230901
